FAERS Safety Report 13574545 (Version 1)
Quarter: 2017Q2

REPORT INFORMATION
  Report Type: Spontaneous
  Country: US (occurrence: US)
  Receive Date: 20170523
  Receipt Date: 20170523
  Transmission Date: 20170830
  Serious: No
  Sender: FDA-Public Use
  Company Number: US-DRREDDYS-USA/USA/16/0085123

PATIENT
  Sex: Female
  Weight: 70.3 kg

DRUGS (2)
  1. ZENATANE [Suspect]
     Active Substance: ISOTRETINOIN
     Indication: ACNE
     Dosage: 30MG AT NIGHT
     Route: 048
     Dates: start: 20160705
  2. ZENATANE [Suspect]
     Active Substance: ISOTRETINOIN
     Dosage: 40 MG IN THE MORNING
     Route: 048
     Dates: start: 20160705

REACTIONS (3)
  - Dry skin [Unknown]
  - Epistaxis [Unknown]
  - Lip dry [Unknown]
